FAERS Safety Report 7471116-0 (Version None)
Quarter: 2011Q2

REPORT INFORMATION
  Report Type: 
  Country: None (occurrence: None)
  Receive Date: 20110506
  Receipt Date: 20110506
  Transmission Date: 20111010
  Serious: No
  Sender: FDA-Public Use
  Company Number: None

PATIENT
  Sex: Female
  Weight: 51.7101 kg

DRUGS (2)
  1. OMEPRAZOLE [Suspect]
     Indication: BARRETT'S OESOPHAGUS
     Dosage: 40MG 1 DAILY BY MOUTH
     Route: 048
     Dates: start: 19980101, end: 19990101
  2. PRILOSEC [Suspect]
     Indication: BARRETT'S OESOPHAGUS
     Dosage: 40MG 1 DAILY BY MOUTH
     Route: 048
     Dates: start: 19980101, end: 19990101

REACTIONS (1)
  - GASTROOESOPHAGEAL REFLUX DISEASE [None]
